FAERS Safety Report 9425145 (Version 1)
Quarter: 2013Q3

REPORT INFORMATION
  Report Type: Spontaneous
  Country: US (occurrence: US)
  Receive Date: 20130729
  Receipt Date: 20130729
  Transmission Date: 20140515
  Serious: No
  Sender: FDA-Public Use
  Company Number: US-TEVA-421482USA

PATIENT
  Sex: Female

DRUGS (2)
  1. COPAXONE [Suspect]
     Indication: MULTIPLE SCLEROSIS
     Dates: start: 20081220
  2. VITAMIN B12 [Concomitant]

REACTIONS (1)
  - Alopecia [Not Recovered/Not Resolved]
